FAERS Safety Report 6377171-3 (Version None)
Quarter: 2009Q3

REPORT INFORMATION
  Report Type: 
  Country: None (occurrence: None)
  Receive Date: 20090924
  Receipt Date: 20090924
  Transmission Date: 20100115
  Serious: No
  Sender: FDA-Public Use
  Company Number: None

PATIENT
  Age: 60 Year
  Sex: Male

DRUGS (1)
  1. ETRAVIRINE [Suspect]
     Dosage: 200MG BID PO
     Route: 048
     Dates: start: 20090529, end: 20090615

REACTIONS (2)
  - FATIGUE [None]
  - LETHARGY [None]
